FAERS Safety Report 5955969-0 (Version None)
Quarter: 2008Q4

REPORT INFORMATION
  Report Type: 
  Country: None (occurrence: None)
  Receive Date: 20081112
  Receipt Date: 20081105
  Transmission Date: 20090506
  Serious: Yes (Hospitalization)
  Sender: FDA-Public Use
  Company Number: 2008SP002781

PATIENT
  Sex: Female
  Weight: 63.5 kg

DRUGS (4)
  1. LUNESTA [Suspect]
     Indication: INSOMNIA
     Dosage: 3 MG; PRN; ORAL
     Route: 048
     Dates: start: 20070101, end: 20081019
  2. MOBIC [Suspect]
     Indication: BURSITIS
     Dosage: 15 MG; PRN
     Dates: end: 20081019
  3. SKELAXIN [Suspect]
     Indication: BURSITIS
     Dosage: 800 MG ;PRN
     Dates: end: 20081019
  4. VICODIN ES [Suspect]
     Indication: BURSITIS
     Dosage: PRN
     Dates: end: 20081019

REACTIONS (5)
  - ABNORMAL SLEEP-RELATED EVENT [None]
  - CARBON MONOXIDE POISONING [None]
  - LOSS OF CONSCIOUSNESS [None]
  - REFUSAL OF TREATMENT BY PATIENT [None]
  - SOMNAMBULISM [None]
